FAERS Safety Report 24556901 (Version 1)
Quarter: 2024Q4

REPORT INFORMATION
  Report Type: Spontaneous
  Country: US (occurrence: US)
  Receive Date: 20241028
  Receipt Date: 20241028
  Transmission Date: 20250115
  Serious: No
  Sender: ROCHE
  Company Number: US-ROCHE-10000114445

PATIENT
  Sex: Female

DRUGS (3)
  1. XOLAIR PFS [Suspect]
     Active Substance: OMALIZUMAB
     Indication: Urticaria
     Route: 058
     Dates: start: 202208
  2. XOLAIR PFS [Suspect]
     Active Substance: OMALIZUMAB
  3. RUCONSET SDV [Concomitant]

REACTIONS (2)
  - Swelling face [Unknown]
  - Gastrointestinal oedema [Unknown]
